FAERS Safety Report 12137983 (Version 1)
Quarter: 2016Q1

REPORT INFORMATION
  Report Type: Other
  Country: IT (occurrence: IT)
  Receive Date: 20160302
  Receipt Date: 20160302
  Transmission Date: 20160526
  Serious: Yes (Other)
  Sender: FDA-Public Use
  Company Number: IT-SYMPLMED PHARMACEUTICALS-2016SYMPLMED000159

PATIENT

DRUGS (1)
  1. PROCAPTAN [Suspect]
     Active Substance: PERINDOPRIL ERBUMINE
     Indication: HYPERTENSION
     Dosage: UNK
     Route: 048
     Dates: start: 20150201, end: 20150822

REACTIONS (2)
  - Drug ineffective [Unknown]
  - Lip oedema [Recovering/Resolving]

NARRATIVE: CASE EVENT DATE: 201508
